FAERS Safety Report 21989605 (Version 1)
Quarter: 2023Q1

REPORT INFORMATION
  Report Type: Spontaneous
  Country: US (occurrence: None)
  Receive Date: 20230213
  Receipt Date: 20230213
  Transmission Date: 20230417
  Serious: No
  Sender: FDA-Public Use
  Company Number: None

PATIENT
  Age: 79 Year
  Sex: Male
  Weight: 104.42 kg

DRUGS (11)
  1. ABIRATERONE [Suspect]
     Active Substance: ABIRATERONE
     Indication: Prostate cancer
     Dosage: FREQUENCY : DAILY;?
     Route: 048
     Dates: start: 202204
  2. AMOXICILLIN-POT CLAVULANATE [Concomitant]
  3. CALCIUM 600+D3 [Concomitant]
  4. FLUTICASONE [Concomitant]
  5. LUPRON [Concomitant]
  6. MULTIVITAMIN [Concomitant]
  7. MYRBETRIQ [Concomitant]
  8. PROPRANOLOL [Concomitant]
     Active Substance: PROPRANOLOL HYDROCHLORIDE
  9. TAMSULOSIN [Concomitant]
  10. TUMERIC [Concomitant]
  11. VITAMIN C, XOFIGO [Concomitant]

REACTIONS (1)
  - Prostatic specific antigen increased [None]
